FAERS Safety Report 7026299-3 (Version None)
Quarter: 2010Q4

REPORT INFORMATION
  Report Type: 
  Country: None (occurrence: None)
  Receive Date: 20101004
  Receipt Date: 20100929
  Transmission Date: 20110411
  Serious: Yes (Other)
  Sender: FDA-Public Use
  Company Number: AT-PFIZER INC-2010123421

PATIENT
  Age: 34 Year
  Sex: Male
  Weight: 78 kg

DRUGS (1)
  1. UNASYN [Suspect]
     Indication: COLITIS
     Dosage: 3 G, 3X/DAY
     Route: 042
     Dates: start: 20100824, end: 20100903

REACTIONS (1)
  - MUSCLE SPASMS [None]
